FAERS Safety Report 7541517-0 (Version None)
Quarter: 2011Q2

REPORT INFORMATION
  Report Type: 
  Country: None (occurrence: None)
  Receive Date: 20110613
  Receipt Date: 20110606
  Transmission Date: 20111010
  Serious: Yes (Death, Hospitalization)
  Sender: FDA-Public Use
  Company Number: US-BRISTOL-MYERS SQUIBB COMPANY-15823032

PATIENT
  Age: 42 Year
  Sex: Male
  Weight: 81 kg

DRUGS (21)
  1. CETUXIMAB [Suspect]
     Indication: HEAD AND NECK CANCER
     Dates: start: 20110517, end: 20110531
  2. VICODIN [Concomitant]
     Indication: PAIN
     Dosage: 1DF:10MG/325MG,TAKE 2 TABS /6 HRS
     Route: 048
     Dates: start: 20110516
  3. BENZYL ALCOHOL [Concomitant]
     Indication: MEDICAL DIET
     Dosage: 1DF:2 TBLSPN/D VIA PEG
     Route: 048
     Dates: start: 20110516
  4. OMEPRAZOLE [Concomitant]
     Indication: GASTROOESOPHAGEAL REFLUX DISEASE
     Route: 048
     Dates: start: 20110516
  5. ONDANSETRON [Concomitant]
     Indication: NAUSEA
     Dosage: 1 TAB AT 8 HRS
     Route: 048
  6. POTASSIUM CHLORIDE [Concomitant]
     Indication: BLOOD POTASSIUM DECREASED
     Dosage: PER 15ML(40 MEQ,1 TBLSPN/D FOR 14D)
     Route: 048
     Dates: start: 20110502
  7. PROCHLORPERAZINE MALEATE [Concomitant]
     Indication: NAUSEA
     Dosage: 1DF:10MG,1 TAB,2X/D
     Route: 048
     Dates: start: 20110516
  8. PROCHLORPERAZINE MALEATE [Concomitant]
     Indication: VOMITING
     Dosage: 1DF:10MG,1 TAB,2X/D
     Route: 048
     Dates: start: 20110516
  9. CEPHALEXIN [Concomitant]
     Indication: INFECTION
     Dosage: PER 5ML 250MG,2TSPN,2X DAY FOR 7 DAYS
     Route: 048
     Dates: start: 20110516
  10. MAGNESIUM HYDROXIDE [Concomitant]
     Indication: CONSTIPATION
     Dosage: 1DF:405MG,2 TSPN, VIA PEG
     Route: 048
     Dates: start: 20110516
  11. OMEPRAZOLE [Concomitant]
     Indication: GASTRIC ULCER
     Route: 048
     Dates: start: 20110516
  12. CARBOPLATIN [Suspect]
     Indication: HEAD AND NECK CANCER
     Route: 042
     Dates: start: 20110517, end: 20110517
  13. ONDANSETRON [Concomitant]
     Indication: VOMITING
     Dosage: 1 TAB AT 8 HRS
     Route: 048
  14. SENNOSIDE [Concomitant]
     Indication: CONSTIPATION
     Dosage: 1DF:8.8MG,2 TSPN,2/D VIA PEG TUBE
     Route: 048
     Dates: start: 20110516
  15. AMBIEN [Concomitant]
     Indication: INSOMNIA
     Dates: start: 20110516
  16. FLUOROURACIL [Suspect]
     Indication: HEAD AND NECK CANCER
     Route: 042
     Dates: start: 20110517, end: 20110521
  17. DEXAMETHASONE [Concomitant]
     Indication: NAUSEA
     Dosage: 4MG 2 TABS,2X/D FOR 3D
     Route: 048
     Dates: start: 20110516
  18. METOCLOPRAMIDE HYDROCHLORIDE [Concomitant]
     Indication: HICCUPS
     Route: 048
     Dates: start: 20110516
  19. ENSURE [Concomitant]
     Indication: MEDICAL DIET
     Dosage: 1DF:5 CANS/D VIA PEG
     Route: 048
     Dates: start: 20110516
  20. DOCUSATE [Concomitant]
  21. FENTANYL [Concomitant]
     Dosage: 8.3333 MCG (25 MCG,1 IN 72 HR) 16.6667 MCG (50 MCG,1 IN 72 HR)
     Route: 062
     Dates: start: 20110516

REACTIONS (1)
  - SEPTIC SHOCK [None]
